FAERS Safety Report 13263796 (Version 1)
Quarter: 2017Q1

REPORT INFORMATION
  Report Type: Spontaneous
  Country: US (occurrence: US)
  Receive Date: 20170222
  Receipt Date: 20170222
  Transmission Date: 20170428
  Serious: Yes (Disabling)
  Sender: FDA-Public Use
  Company Number: None

PATIENT
  Age: 61 Year
  Sex: Female

DRUGS (10)
  1. DITIAZEM ER [Suspect]
     Active Substance: DILTIAZEM
     Indication: HYPERTENSION
     Dosage: ?          QUANTITY:1 CAPSULE(S);?
     Route: 048
     Dates: start: 20161102, end: 20170127
  2. CARTIA XT [Concomitant]
     Active Substance: DILTIAZEM HYDROCHLORIDE
  3. OXYCODONE [Concomitant]
     Active Substance: OXYCODONE
  4. METHOCARBAMOL. [Concomitant]
     Active Substance: METHOCARBAMOL
  5. VITAMIN C [Concomitant]
     Active Substance: ASCORBIC ACID
  6. CIMETIDINE [Concomitant]
     Active Substance: CIMETIDINE
  7. LISINOPRIL. [Concomitant]
     Active Substance: LISINOPRIL
  8. BABY ASPIRIN [Concomitant]
     Active Substance: ASPIRIN
  9. ISOSORBIDE DINITRATE ER [Concomitant]
     Active Substance: ISOSORBIDE DINITRATE
  10. FISH OIL [Concomitant]
     Active Substance: FISH OIL

REACTIONS (3)
  - Blood pressure increased [None]
  - Peripheral swelling [None]
  - Fatigue [None]

NARRATIVE: CASE EVENT DATE: 20161102
